FAERS Safety Report 8811672 (Version 1)
Quarter: 2012Q4

REPORT INFORMATION
  Report Type: Spontaneous
  Country: US (occurrence: None)
  Receive Date: 20120925
  Receipt Date: 20120925
  Transmission Date: 20130627
  Serious: No
  Sender: FDA-Public Use
  Company Number: None

PATIENT
  Age: 40 Year
  Sex: Male
  Weight: 136.08 kg

DRUGS (1)
  1. CYMBALTA [Suspect]
     Indication: CHRONIC PAIN
     Dates: start: 20110501, end: 20110715

REACTIONS (1)
  - Testicular pain [None]
